FAERS Safety Report 9050555 (Version 5)
Quarter: 2013Q3

REPORT INFORMATION
  Report Type: Spontaneous
  Country: US (occurrence: US)
  Receive Date: 20130205
  Receipt Date: 20130823
  Transmission Date: 20140515
  Serious: Yes (Hospitalization, Other)
  Sender: FDA-Public Use
  Company Number: US-MERCK-1302USA001573

PATIENT
  Sex: Female
  Weight: 71.66 kg

DRUGS (3)
  1. FOSAMAX [Suspect]
     Indication: OSTEOPOROSIS PROPHYLAXIS
     Dosage: 35 MG, QW
     Route: 048
     Dates: end: 200904
  2. FOSAMAX [Suspect]
     Dosage: 5 MG, QD
     Route: 048
  3. FOSAMAX [Suspect]
     Dosage: 10 MG, QD
     Route: 048

REACTIONS (16)
  - Femur fracture [Unknown]
  - Intramedullary rod insertion [Unknown]
  - Coronary artery disease [Unknown]
  - Coronary artery bypass [Unknown]
  - Tooth extraction [Unknown]
  - Dental implantation [Unknown]
  - Asthma [Unknown]
  - Dyslipidaemia [Unknown]
  - Abscess [Unknown]
  - Rhonchi [Unknown]
  - Carotid artery disease [Unknown]
  - Family stress [Unknown]
  - Ventricular extrasystoles [Unknown]
  - Metabolic syndrome [Unknown]
  - Osteopenia [Unknown]
  - Cardiac murmur [Unknown]
